FAERS Safety Report 4518932-2 (Version None)
Quarter: 2004Q4

REPORT INFORMATION
  Report Type: 
  Country: None (occurrence: None)
  Receive Date: 20041201
  Receipt Date: 20041115
  Transmission Date: 20050328
  Serious: Yes (Other)
  Sender: FDA-Public Use
  Company Number: M2004-1682

PATIENT
  Age: 56 Year
  Sex: Male

DRUGS (2)
  1. NYDRAZID [Suspect]
     Indication: PULMONARY TUBERCULOSIS
  2. RIMACTANE [Suspect]
     Indication: PULMONARY TUBERCULOSIS

REACTIONS (5)
  - CARDIOMEGALY [None]
  - HYPERPYREXIA [None]
  - PERICARDITIS [None]
  - PLEURAL EFFUSION [None]
  - TRANSAMINASES INCREASED [None]
